FAERS Safety Report 4437537-5 (Version None)
Quarter: 2004Q3

REPORT INFORMATION
  Report Type: 
  Country: None (occurrence: None)
  Receive Date: 20040830
  Receipt Date: 20040830
  Transmission Date: 20050211
  Serious: Yes (Hospitalization)
  Sender: FDA-Public Use
  Company Number: None

PATIENT
  Age: 68 Year
  Sex: Female
  Weight: 52.7307 kg

DRUGS (15)
  1. TAXOTERE [Suspect]
     Indication: NON-SMALL CELL LUNG CANCER
     Dosage: 32 MG IV WKLY X 7
     Route: 042
     Dates: start: 20040708, end: 20040817
  2. CARBOPLATIN [Suspect]
     Indication: NON-SMALL CELL LUNG CANCER
     Dosage: 158 IV WKLY X 7
     Route: 042
     Dates: start: 20040708, end: 20040817
  3. RT=1.8 GY PER DAY X 5D/WK WKS 1-5 TOTAL 45 GY [Suspect]
     Indication: NON-SMALL CELL LUNG CANCER STAGE IIIB
     Dosage: RT=1.8 GY PER DAY X 5D/WK WKS 1-5 TOTAL 45 GY
     Dates: start: 20040713, end: 20040824
  4. RT=2.0 GY PER DAY X 5 D/WK WKS 6-7 [Suspect]
     Indication: NON-SMALL CELL LUNG CANCER STAGE IIIB
     Dosage: RT=2.0 GY PER DAY X 5 D/WK WKS 6-7 TOTAL OF 30 RTS
     Dates: start: 20040713, end: 20040824
  5. QUININE [Concomitant]
  6. ACTONEL [Concomitant]
  7. ZOLOX [Concomitant]
  8. ZYRTEC [Concomitant]
  9. ATENOLOL [Concomitant]
  10. NASONEX [Concomitant]
  11. ASPIRIN [Concomitant]
  12. CARAFATE [Concomitant]
  13. ZYBAN [Concomitant]
  14. REGLAN [Concomitant]
  15. AMBIEN [Concomitant]

REACTIONS (7)
  - ACUTE PRERENAL FAILURE [None]
  - LEUKOPENIA [None]
  - NEUTROPHIL COUNT DECREASED [None]
  - POST PROCEDURAL NAUSEA [None]
  - POST PROCEDURAL VOMITING [None]
  - RADIATION OESOPHAGITIS [None]
  - WEIGHT DECREASED [None]
